FAERS Safety Report 19240134 (Version 2)
Quarter: 2021Q2

REPORT INFORMATION
  Report Type: Report from Study
  Country: US (occurrence: US)
  Receive Date: 20210510
  Receipt Date: 20210617
  Transmission Date: 20210717
  Serious: Yes (Hospitalization)
  Sender: FDA-Public Use
  Company Number: US-JNJFOC-20210505725

PATIENT
  Age: 70 Year
  Sex: Male
  Weight: 124.4 kg

DRUGS (19)
  1. ANORO ELLIPTA [Concomitant]
     Active Substance: UMECLIDINIUM BROMIDE\VILANTEROL TRIFENATATE
     Dosage: 1 PUFF INHALATION DAILY
  2. SILDENAFIL. [Concomitant]
     Active Substance: SILDENAFIL
     Dosage: 100 MG, 5 TABLETS ORAL BID
     Route: 048
     Dates: start: 20171206
  3. GUAIFENESIN. [Concomitant]
     Active Substance: GUAIFENESIN
     Route: 048
     Dates: start: 20210413
  4. GABAPENTIN. [Concomitant]
     Active Substance: GABAPENTIN
     Route: 048
     Dates: start: 20201130
  5. ATORVASTATIN [Concomitant]
     Active Substance: ATORVASTATIN
     Route: 048
     Dates: start: 20171206
  6. LOPERAMIDE [Concomitant]
     Active Substance: LOPERAMIDE
     Dosage: 2 MG, 1 TAB, ORAL Q4HOURS PRN
     Route: 048
     Dates: start: 20200910
  7. INSULIN GLARGINE [Concomitant]
     Active Substance: INSULIN GLARGINE
     Dosage: 70 UNITS SUBCUTANEOUS, QHS
     Route: 058
     Dates: start: 20171206
  8. EMPAGLIFLOZIN [Concomitant]
     Active Substance: EMPAGLIFLOZIN
     Dosage: 10 MG DAILY WITH BREAKFAST
     Route: 048
     Dates: start: 20200910
  9. ALBUTEROL [SALBUTAMOL] [Concomitant]
     Active Substance: ALBUTEROL
     Dosage: 2 PUFFS INHALATION Q6HOURS PRN
     Dates: start: 20210112
  10. CLOPIDOGREL [Concomitant]
     Active Substance: CLOPIDOGREL BISULFATE
     Route: 048
     Dates: start: 20171206
  11. BUDESONIDE AND FORMOTEROL [Concomitant]
     Active Substance: BUDESONIDE\FORMOTEROL
     Dosage: 2 PUFFS INHALATION BID
     Dates: start: 20210112
  12. SELEXIPAG [Suspect]
     Active Substance: SELEXIPAG
     Indication: PULMONARY ARTERIAL HYPERTENSION
     Route: 048
     Dates: start: 20160314
  13. PAROXETINE. [Concomitant]
     Active Substance: PAROXETINE
     Route: 048
     Dates: start: 20201130
  14. TORSEMIDE. [Concomitant]
     Active Substance: TORSEMIDE
     Route: 048
  15. OXYGEN. [Concomitant]
     Active Substance: OXYGEN
  16. METOLAZONE. [Concomitant]
     Active Substance: METOLAZONE
     Dosage: 2.5 MG 1 TAB, THURSDAY PRN
     Route: 048
     Dates: start: 20201130
  17. LEVOTHYROXINE. [Concomitant]
     Active Substance: LEVOTHYROXINE
     Route: 048
     Dates: start: 20171206
  18. INSULIN LISPRO [Concomitant]
     Active Substance: INSULIN LISPRO
     Dosage: 30 UNITS, SUBCUTANEOUS QHS
     Route: 058
     Dates: start: 20190913
  19. ACETAMINOPHEN. [Concomitant]
     Active Substance: ACETAMINOPHEN
     Dosage: 650 MG 2 TABS ORAL Q4HOURS PRN
     Route: 048
     Dates: start: 20201110

REACTIONS (2)
  - Fall [Recovered/Resolved]
  - Rib fracture [Recovered/Resolved]

NARRATIVE: CASE EVENT DATE: 20210501
